FAERS Safety Report 17427769 (Version 8)
Quarter: 2021Q2

REPORT INFORMATION
  Report Type: Report from Study
  Country: US (occurrence: US)
  Receive Date: 20200218
  Receipt Date: 20210624
  Transmission Date: 20210716
  Serious: Yes (Hospitalization, Other)
  Sender: FDA-Public Use
  Company Number: NVSC2020US041103

PATIENT
  Age: 65 Year
  Sex: Male
  Weight: 194 kg

DRUGS (12)
  1. TREPROSTINIL. [Suspect]
     Active Substance: TREPROSTINIL
     Dosage: 18 NG, CONT 18 NG/KG/MIN)
     Route: 042
  2. TREPROSTINIL. [Suspect]
     Active Substance: TREPROSTINIL
     Dosage: 22 NG, CONT (22 NG/KG/MIN)
     Route: 042
     Dates: start: 20200217
  3. TREPROSTINIL. [Suspect]
     Active Substance: TREPROSTINIL
     Dosage: 10 UNK, CONT (10 NG/KG/MIN)
     Route: 042
     Dates: start: 20200217
  4. TREPROSTINIL. [Suspect]
     Active Substance: TREPROSTINIL
     Dosage: 16 UNK, CONT ( 16 NG/KG/MIN)
     Route: 042
  5. TREPROSTINIL. [Suspect]
     Active Substance: TREPROSTINIL
     Dosage: 24 NG, CONT (24NG/KG/MIN)
     Route: 042
     Dates: start: 20200217
  6. ELIQUIS [Concomitant]
     Active Substance: APIXABAN
     Indication: PULMONARY ARTERIAL HYPERTENSION
     Dosage: UNK UNK, UNKNOWN
     Route: 065
  7. UPTRAVI [Suspect]
     Active Substance: SELEXIPAG
     Indication: PULMONARY ARTERIAL HYPERTENSION
     Dosage: UNK UNK, UNKNOWN
     Route: 065
  8. TREPROSTINIL. [Suspect]
     Active Substance: TREPROSTINIL
     Dosage: 22 NG, CONT (22 NG/KG/MIN)
     Route: 042
     Dates: start: 20200217
  9. OPSUMIT [Concomitant]
     Active Substance: MACITENTAN
     Indication: PULMONARY ARTERIAL HYPERTENSION
     Dosage: UNK UNK, UNKNOWN
     Route: 065
  10. TREPROSTINIL. [Suspect]
     Active Substance: TREPROSTINIL
     Indication: PULMONARY ARTERIAL HYPERTENSION
     Dosage: 7 NG, CONT ( 7 NG/KG/MIN )
     Route: 042
  11. DILTIAZEM. [Concomitant]
     Active Substance: DILTIAZEM
     Indication: PULMONARY ARTERIAL HYPERTENSION
     Route: 065
  12. ADCIRCA [Concomitant]
     Active Substance: TADALAFIL
     Indication: PULMONARY ARTERIAL HYPERTENSION
     Dosage: UNK UNK, UNKNOWN
     Route: 065

REACTIONS (11)
  - Syncope [Unknown]
  - Heart rate increased [Unknown]
  - Abdominal pain [Unknown]
  - Headache [Unknown]
  - Tachycardia [Unknown]
  - Hypokalaemia [Unknown]
  - Heart rate abnormal [Unknown]
  - Rash [Unknown]
  - Injection site irritation [Not Recovered/Not Resolved]
  - Atrial fibrillation [Unknown]
  - Injection site erythema [Not Recovered/Not Resolved]

NARRATIVE: CASE EVENT DATE: 20200709
